FAERS Safety Report 5611449-3 (Version None)
Quarter: 2008Q1

REPORT INFORMATION
  Report Type: 
  Country: None (occurrence: None)
  Receive Date: 20080201
  Receipt Date: 20080122
  Transmission Date: 20080703
  Serious: Yes (Hospitalization)
  Sender: FDA-Public Use
  Company Number: US-ELI_LILLY_AND_COMPANY-US200801004549

PATIENT
  Sex: Male

DRUGS (9)
  1. HUMALOG [Suspect]
  2. HUMALOG [Suspect]
  3. MECLIZINE [Concomitant]
  4. NITROGLYCERIN [Concomitant]
     Dosage: 1/150 GR.
  5. ATENOLOL [Concomitant]
  6. ASPIRIN [Concomitant]
     Dosage: 81 MG, UNK
  7. ZOCOR [Concomitant]
  8. HYDROCHLOROTHIAZIDE [Concomitant]
  9. PRILOSEC [Concomitant]

REACTIONS (1)
  - ANGINA PECTORIS [None]
